FAERS Safety Report 4757291-7 (Version None)
Quarter: 2005Q3

REPORT INFORMATION
  Report Type: 
  Country: None (occurrence: None)
  Receive Date: 20050829
  Receipt Date: 20050824
  Transmission Date: 20060218
  Serious: Yes (Other)
  Sender: FDA-Public Use
  Company Number: 216466

PATIENT

DRUGS (2)
  1. AVASTIN [Suspect]
  2. CISPLATIN [Concomitant]

REACTIONS (1)
  - HYPOMAGNESAEMIA [None]
